FAERS Safety Report 18499693 (Version 1)
Quarter: 2020Q4

REPORT INFORMATION
  Report Type: Spontaneous
  Country: CN (occurrence: CN)
  Receive Date: 20201113
  Receipt Date: 20201113
  Transmission Date: 20210114
  Serious: Yes (Hospitalization, Other)
  Sender: FDA-Public Use
  Company Number: CN-LUPIN PHARMACEUTICALS INC.-2020-08804

PATIENT
  Age: 46 Year
  Sex: Female

DRUGS (33)
  1. PREDNISONE ACETATE [Suspect]
     Active Substance: PREDNISONE ACETATE
     Indication: COVID-19
     Dosage: 15 MILLIGRAM, QD
     Route: 065
  2. ESOMEPRAZOLE. [Concomitant]
     Active Substance: ESOMEPRAZOLE MAGNESIUM
     Indication: PROPHYLAXIS
     Dosage: 40 MILLIGRAM, QD (ON DAYS 1-7)
     Route: 065
  3. OSELTAMIVIR [Suspect]
     Active Substance: OSELTAMIVIR
     Indication: COVID-19
     Dosage: UNK
     Route: 065
  4. TORASEMIDE [Concomitant]
     Active Substance: TORSEMIDE
     Indication: DIURETIC THERAPY
     Dosage: 10 MILLIGRAM, BID, (ON DAYS 5-12)
     Route: 065
  5. AMBROXOL [Concomitant]
     Active Substance: AMBROXOL
     Indication: ASTHMA
     Dosage: 30 MILLIGRAM, BID,  (ON DAYS 1-35)
     Route: 065
  6. BICYCLOL [Concomitant]
     Active Substance: BICYCLOL
     Indication: PROPHYLAXIS
     Dosage: 50 MILLIGRAM, TID (THRICE DAILY; ON DAYS 32-36)
     Route: 065
  7. METHYLPREDNISOLONE. [Suspect]
     Active Substance: METHYLPREDNISOLONE
     Indication: COVID-19
     Dosage: 40 MILLIGRAM, QD
     Route: 065
  8. METHYLPREDNISOLONE. [Suspect]
     Active Substance: METHYLPREDNISOLONE
     Dosage: 30 MILLIGRAM, BID
     Route: 065
  9. PANTOPRAZOLE SODIUM. [Concomitant]
     Active Substance: PANTOPRAZOLE SODIUM
     Indication: PROPHYLAXIS
     Dosage: 42.3 MILLIGRAM, QD (ON DAYS 27-35)
     Route: 065
  10. CALCIUM ACETATE. [Concomitant]
     Active Substance: CALCIUM ACETATE
     Indication: MINERAL SUPPLEMENTATION
     Dosage: 600 MILLIGRAM, QD (ON DAYS 7-36)
     Route: 065
  11. METHYLPREDNISOLONE. [Suspect]
     Active Substance: METHYLPREDNISOLONE
     Dosage: 20 MILLIGRAM, QD
     Route: 065
  12. LOPINAVIR/RITONAVIR [Suspect]
     Active Substance: LOPINAVIR\RITONAVIR
     Indication: COVID-19
     Dosage: AT INITIAL ADMISSION
     Route: 065
     Dates: start: 202001
  13. LOPINAVIR/RITONAVIR [Suspect]
     Active Substance: LOPINAVIR\RITONAVIR
     Dosage: 0.5 GRAM, BID (DAY 1-6 OF ADMISSION)
     Route: 065
     Dates: start: 20200131, end: 20200205
  14. GLUTATHIONE [Concomitant]
     Active Substance: GLUTATHIONE
     Indication: PROPHYLAXIS
     Dosage: 1.8 GRAM, QD (ON DAYS 10-35)
     Route: 065
  15. ACARBOSE. [Concomitant]
     Active Substance: ACARBOSE
     Indication: DIABETES MELLITUS
     Dosage: 50 MILLIGRAM, BID,  (ON DAYS 1-5)
     Route: 065
     Dates: start: 20200131
  16. ACETYLCYSTEINE. [Concomitant]
     Active Substance: ACETYLCYSTEINE
     Indication: ASTHMA
     Dosage: 0.6 GRAM, TID (THRICE DAILY ON DAYS 4-36)
     Route: 065
  17. NADROPARIN CALCIUM [Concomitant]
     Active Substance: NADROPARIN CALCIUM
     Indication: ANTICOAGULANT THERAPY
     Dosage: UNK, QD, 4100 AXAU; ON DAYS 10-30
     Route: 065
  18. METFORMIN [Concomitant]
     Active Substance: METFORMIN HYDROCHLORIDE
     Indication: DIABETES MELLITUS
     Dosage: 50 MILLIGRAM, BID, (ON DAYS 1-5)
     Route: 065
     Dates: start: 20200131
  19. METHYLPREDNISOLONE. [Suspect]
     Active Substance: METHYLPREDNISOLONE
     Dosage: 40 MILLIGRAM, BID
     Route: 065
  20. RIFAMPIN CAPSULES [Suspect]
     Active Substance: RIFAMPIN
     Indication: COVID-19
     Dosage: 0.45 GRAM, QD (AT NIGHT; ON DAYS 28-36)
     Route: 065
  21. CASPOFUNGIN [Concomitant]
     Active Substance: CASPOFUNGIN
     Indication: PROPHYLAXIS
     Dosage: 50 MILLIGRAM, QD (ON DAYS 3-14)
     Route: 065
     Dates: start: 202002
  22. INTERFERON ALFA-2B RECOMBINANT [Concomitant]
     Active Substance: INTERFERON ALFA-2B
     Indication: COVID-19
     Dosage: UNK, BID, 5 MILLION IU, ON DAYS 1-18
     Route: 065
     Dates: start: 20200131
  23. CEFOPERAZONE SODIUM;SULBACTAM [Concomitant]
     Indication: PROPHYLAXIS
     Dosage: 3 GRAM, TID, ON DAYS 3-18
     Route: 065
     Dates: start: 2020
  24. METHYLPREDNISOLONE. [Suspect]
     Active Substance: METHYLPREDNISOLONE
     Dosage: 20 MILLIGRAM, BID
     Route: 065
  25. MOXIFLOXACIN. [Concomitant]
     Active Substance: MOXIFLOXACIN
     Indication: PROPHYLAXIS
     Dosage: 0.4 GRAM, QD (ON DAYS 1-18)
     Route: 065
     Dates: start: 20200131
  26. HUMAN IMMUNOGLOBULIN [Concomitant]
     Indication: COVID-19
     Dosage: 20 GRAM, QD (ON DAYS 2-3)
     Route: 065
  27. NOVOLIN 30R [INSULIN] [Concomitant]
     Active Substance: INSULIN HUMAN
     Indication: DIABETES MELLITUS
     Dosage: (DOSE ADJUSTED ACCORDING TO THE MEASUREMENT OF BLOOD GLUCOSE LEVEL) DAY 16-36
     Route: 065
     Dates: start: 202002
  28. ARBIDOL [Concomitant]
     Active Substance: UMIFENOVIR
     Indication: COVID-19
     Dosage: 0.2 GRAM, TID (THRICE DAILY (DAY 6-18 OF ADMISSION))
     Route: 065
     Dates: start: 202002
  29. RIBAVIRIN. [Suspect]
     Active Substance: RIBAVIRIN
     Indication: COVID-19
     Dosage: 0.3 GRAM, TID (THRICE DAILY (DAY 4-12))
     Route: 065
  30. PREDNISONE ACETATE [Suspect]
     Active Substance: PREDNISONE ACETATE
     Dosage: 10 MILLIGRAM, QD
     Route: 065
  31. FUROSEMIDE. [Concomitant]
     Active Substance: FUROSEMIDE
     Indication: PULMONARY OEDEMA
     Dosage: SMALL DOSE
     Route: 065
  32. THYMALFASIN [Concomitant]
     Active Substance: THYMALFASIN
     Indication: COVID-19
     Dosage: 1.6 MILLIGRAM, QD (ON DAYS 1-20)
     Route: 065
  33. INSULIN [Concomitant]
     Active Substance: INSULIN NOS
     Indication: DIABETES MELLITUS
     Dosage: UNK, QD, 8-20U (DOSE ADJUSTED ACCORDING TO THE MEASUREMENT OF BLOOD GLUCOSE LEVEL) DAY 3-16
     Route: 065
     Dates: start: 202002

REACTIONS (2)
  - Diabetes mellitus [Recovered/Resolved]
  - Off label use [Unknown]
